FAERS Safety Report 7457387-5 (Version None)
Quarter: 2011Q2

REPORT INFORMATION
  Report Type: 
  Country: None (occurrence: None)
  Receive Date: 20110504
  Receipt Date: 20110425
  Transmission Date: 20111010
  Serious: Yes (Other)
  Sender: FDA-Public Use
  Company Number: US-CEPHALON-2011000372

PATIENT
  Sex: Female
  Weight: 74 kg

DRUGS (5)
  1. BACTROBAN [Concomitant]
  2. DOXYCYCLINE [Concomitant]
  3. PHENAZOPYRIDINE HCL TAB [Concomitant]
     Indication: BLADDER SPASM
     Dates: start: 20110118
  4. NUVIGIL [Suspect]
     Indication: ASTHENIA
     Route: 048
     Dates: start: 20110119, end: 20110120
  5. NUVIGIL [Suspect]
     Indication: FATIGUE

REACTIONS (23)
  - MUSCULAR WEAKNESS [None]
  - VULVOVAGINAL PRURITUS [None]
  - TACHYCARDIA [None]
  - CHEST PAIN [None]
  - BLOOD PRESSURE INCREASED [None]
  - PANIC ATTACK [None]
  - NAUSEA [None]
  - REFLUX GASTRITIS [None]
  - DIARRHOEA [None]
  - DEPRESSION [None]
  - HYPOAESTHESIA [None]
  - DECREASED APPETITE [None]
  - DYSPEPSIA [None]
  - INSOMNIA [None]
  - NERVOUSNESS [None]
  - PALPITATIONS [None]
  - ASTHENIA [None]
  - FATIGUE [None]
  - PARAESTHESIA ORAL [None]
  - ANXIETY [None]
  - PARAESTHESIA [None]
  - URINARY TRACT INFECTION [None]
  - DYSPNOEA [None]
